FAERS Safety Report 7820265-3 (Version None)
Quarter: 2011Q4

REPORT INFORMATION
  Report Type: 
  Country: None (occurrence: None)
  Receive Date: 20111018
  Receipt Date: 20111007
  Transmission Date: 20120403
  Serious: Yes (Hospitalization)
  Sender: FDA-Public Use
  Company Number: AR-NOVOPROD-336669

PATIENT

DRUGS (5)
  1. INSULATARD FLEXPEN [Suspect]
     Dosage: 65 IU, QD
     Route: 064
     Dates: start: 20110201
  2. LEVOTHYROXINE SODIUM [Concomitant]
     Dosage: 175 UNK, QD
     Route: 064
     Dates: start: 19980101
  3. ACTRAPID HM PENFILL [Suspect]
     Indication: TYPE 1 DIABETES MELLITUS
     Dosage: 7-9 IU
     Route: 064
     Dates: start: 20110201
  4. INSULATARD FLEXPEN [Suspect]
     Indication: TYPE 1 DIABETES MELLITUS
     Dosage: 65 IU, QD
     Route: 064
     Dates: start: 20110201
  5. FOLIC ACID [Concomitant]
     Dosage: UNK
     Route: 064
     Dates: start: 20110301

REACTIONS (2)
  - PREMATURE BABY [None]
  - MATERNAL EXPOSURE DURING PREGNANCY [None]
